FAERS Safety Report 4478883-9 (Version None)
Quarter: 2004Q4

REPORT INFORMATION
  Report Type: 
  Country: None (occurrence: None)
  Receive Date: 20041014
  Receipt Date: 20040714
  Transmission Date: 20050328
  Serious: Yes (Hospitalization)
  Sender: FDA-Public Use
  Company Number: ATO-03-0139

PATIENT
  Age: 89 Year
  Sex: Male
  Weight: 75 kg

DRUGS (7)
  1. TRISENOX [Suspect]
     Indication: MYELODYSPLASTIC SYNDROME
     Dosage: 0.30 MG/KG THEN 0.25 MG/KG (5 DOSE LOAD: 2X/WK), IVI
     Route: 042
     Dates: start: 20030307, end: 20030410
  2. NITROGLYCERIN [Concomitant]
  3. DIPYRIDAMOLE [Concomitant]
  4. DILTIAZEM [Concomitant]
  5. ASPIRIN [Concomitant]
  6. FUROSEMIDE [Concomitant]
  7. LORAZEPAM [Concomitant]

REACTIONS (4)
  - COUGH [None]
  - DRUG TOXICITY [None]
  - FEBRILE NEUTROPENIA [None]
  - PNEUMONIA STAPHYLOCOCCAL [None]
